FAERS Safety Report 12609032 (Version 1)
Quarter: 2016Q3

REPORT INFORMATION
  Report Type: Spontaneous
  Country: DE (occurrence: DE)
  Receive Date: 20160731
  Receipt Date: 20160731
  Transmission Date: 20161109
  Serious: Yes (Other)
  Sender: FDA-Public Use
  Company Number: PHHY2016DE100818

PATIENT
  Sex: Female

DRUGS (7)
  1. TOREM//TORASEMIDE [Concomitant]
     Indication: CARDIOMYOPATHY
     Dosage: 10 MG, QD
     Route: 048
     Dates: start: 20150306
  2. COSENTYX [Suspect]
     Active Substance: SECUKINUMAB
     Indication: PSORIATIC ARTHROPATHY
     Dosage: 300 MG, QW5
     Route: 058
     Dates: start: 20160223
  3. COSENTYX [Suspect]
     Active Substance: SECUKINUMAB
     Dosage: 300 MG, QMO
     Route: 058
     Dates: end: 20160429
  4. METOPROLOL. [Concomitant]
     Active Substance: METOPROLOL
     Indication: CARDIOMYOPATHY
     Dosage: 95 MG, QD
     Route: 048
     Dates: start: 20150306
  5. AQUAPHOR [Concomitant]
     Active Substance: PETROLATUM
     Indication: CARDIOMYOPATHY
     Dosage: 40 MG, QD
     Route: 048
     Dates: start: 20150306
  6. PANTOPRAZOLE [Concomitant]
     Active Substance: PANTOPRAZOLE SODIUM
     Indication: GASTROOESOPHAGEAL REFLUX DISEASE
     Dosage: 40 MG, QD
     Route: 048
     Dates: start: 2014
  7. DABIGATRAN [Concomitant]
     Active Substance: DABIGATRAN
     Indication: CARDIOMYOPATHY
     Dosage: 220 MG, QD
     Route: 048
     Dates: start: 20150306

REACTIONS (2)
  - Pruritus [Recovered/Resolved]
  - Inappropriate schedule of drug administration [Unknown]
